FAERS Safety Report 10399532 (Version 2)
Quarter: 2014Q4

REPORT INFORMATION
  Report Type: Spontaneous
  Country: US (occurrence: US)
  Receive Date: 20140821
  Receipt Date: 20141117
  Transmission Date: 20150528
  Serious: No
  Sender: FDA-Public Use
  Company Number: US-009507513-1408USA005058

PATIENT
  Age: 29 Year
  Sex: Female
  Weight: 73.92 kg

DRUGS (2)
  1. IMPLANON [Suspect]
     Active Substance: ETONOGESTREL
     Dosage: UNK
  2. IMPLANON [Suspect]
     Active Substance: ETONOGESTREL
     Indication: CONTRACEPTION
     Dosage: LEFT ARM
     Route: 059
     Dates: start: 20110607

REACTIONS (8)
  - Device dislocation [Unknown]
  - Hot flush [Unknown]
  - Incorrect drug administration duration [Unknown]
  - Muscle spasms [Unknown]
  - Tenderness [Unknown]
  - Medical device complication [Not Recovered/Not Resolved]
  - Tremor [Unknown]
  - Device deployment issue [Not Recovered/Not Resolved]

NARRATIVE: CASE EVENT DATE: 2013
